FAERS Safety Report 8045562-0 (Version None)
Quarter: 2012Q1

REPORT INFORMATION
  Report Type: 
  Country: None (occurrence: None)
  Receive Date: 20120113
  Receipt Date: 20120104
  Transmission Date: 20120608
  Serious: Yes (Other)
  Sender: FDA-Public Use
  Company Number: US-PFIZER INC-2012002612

PATIENT
  Sex: Male

DRUGS (1)
  1. XALATAN [Suspect]
     Indication: GLAUCOMA
     Dosage: ONCE A DAY IN BOTH EYES
     Route: 047
     Dates: end: 20111101

REACTIONS (2)
  - BRAIN NEOPLASM [None]
  - CONVULSION [None]
